FAERS Safety Report 18846597 (Version 1)
Quarter: 2021Q1

REPORT INFORMATION
  Report Type: Report from Study
  Country: US (occurrence: US)
  Receive Date: 20210203
  Receipt Date: 20210203
  Transmission Date: 20210419
  Serious: No
  Sender: FDA-Public Use
  Company Number: US-EXELIXIS-CABO-19025935

PATIENT
  Sex: Female

DRUGS (35)
  1. PATANOL [Concomitant]
     Active Substance: OLOPATADINE HYDROCHLORIDE
  2. SUDAFED [Concomitant]
     Active Substance: PSEUDOEPHEDRINE HYDROCHLORIDE
  3. ALBUTEROL. [Concomitant]
     Active Substance: ALBUTEROL
  4. AMLODIPINE [Concomitant]
     Active Substance: AMLODIPINE BESYLATE
  5. COMETRIQ [Suspect]
     Active Substance: CABOZANTINIB S-MALATE
     Indication: THYROID CANCER
     Dosage: 60 MG, QD (3 CAPSULES OF 20 MG)
     Route: 048
     Dates: start: 20191111
  6. MAGNESIUM [Concomitant]
     Active Substance: MAGNESIUM
  7. SELENIUM [Concomitant]
     Active Substance: SELENIUM
  8. MUPIROCIN. [Concomitant]
     Active Substance: MUPIROCIN
  9. METHYLPREDNISOLONE. [Concomitant]
     Active Substance: METHYLPREDNISOLONE
  10. ALREX [Concomitant]
     Active Substance: LOTEPREDNOL ETABONATE
  11. REFRESH TEARS [Concomitant]
     Active Substance: CARBOXYMETHYLCELLULOSE SODIUM
  12. ZOMETA [Concomitant]
     Active Substance: ZOLEDRONIC ACID
  13. SHINGRIX [Concomitant]
     Active Substance: RECOMBINANT VARICELLA ZOSTER VIRUS (VZV) GLYCOPROTEIN E
  14. DOXAZOSIN [Concomitant]
     Active Substance: DOXAZOSIN MESYLATE
  15. HAWTHORN [Concomitant]
     Active Substance: CRATAEGUS LAEVIGATA FRUIT
     Dosage: UNK
  16. ALEVE [Concomitant]
     Active Substance: NAPROXEN SODIUM
  17. ALLERGY RELIEF [Concomitant]
  18. VITAMIN B COMPLEX [Concomitant]
     Active Substance: CYANOCOBALAMIN\DEXPANTHENOL\NIACINAMIDE\PYRIDOXINE HYDROCHLORIDE\RIBOFLAVIN 5^-PHOSPHATE SODIUM\THIAMINE HYDROCHLORIDE\VITAMIN B COMPLEX
  19. FISH OIL [Concomitant]
     Active Substance: FISH OIL
  20. FLUTICASONE. [Concomitant]
     Active Substance: FLUTICASONE
  21. NEXIUM [Concomitant]
     Active Substance: ESOMEPRAZOLE MAGNESIUM
  22. PEPCID [Concomitant]
     Active Substance: FAMOTIDINE
  23. VITAMIN K [Concomitant]
     Active Substance: PHYTONADIONE
  24. ONDASETRON [Concomitant]
     Active Substance: ONDANSETRON
  25. COENZYME Q10 [Concomitant]
     Active Substance: DIETARY SUPPLEMENT\UBIDECARENONE
  26. LIPITOR [Concomitant]
     Active Substance: ATORVASTATIN CALCIUM
  27. PRILOSEC [Concomitant]
     Active Substance: OMEPRAZOLE MAGNESIUM
  28. PROBIOTIC 10 [Concomitant]
     Active Substance: DIETARY SUPPLEMENT\PROBIOTICS
  29. BETAMETHASONE DIPROPIONATE. [Concomitant]
     Active Substance: BETAMETHASONE DIPROPIONATE
  30. DICLOFENAC [Concomitant]
     Active Substance: DICLOFENAC
  31. SYNTHROID [Concomitant]
     Active Substance: LEVOTHYROXINE SODIUM
  32. VITAMIN D2 [Concomitant]
     Active Substance: ERGOCALCIFEROL
  33. XANAX [Concomitant]
     Active Substance: ALPRAZOLAM
  34. LENVIMA [Concomitant]
     Active Substance: LENVATINIB
  35. DIGESTIVE ENZYMES [Concomitant]
     Active Substance: UNSPECIFIED INGREDIENT

REACTIONS (5)
  - Diarrhoea [Unknown]
  - Glossodynia [Unknown]
  - Constipation [Unknown]
  - Oral pain [Unknown]
  - Palmar-plantar erythrodysaesthesia syndrome [Unknown]
